FAERS Safety Report 11651704 (Version 1)
Quarter: 2015Q4

REPORT INFORMATION
  Report Type: Spontaneous
  Country: US (occurrence: None)
  Receive Date: 20151021
  Receipt Date: 20151021
  Transmission Date: 20160304
  Serious: No
  Sender: FDA-Public Use
  Company Number: None

PATIENT
  Age: 28 Year
  Sex: Female
  Weight: 68.04 kg

DRUGS (2)
  1. LORATADINE. [Concomitant]
     Active Substance: LORATADINE
  2. SYMBICORT [Suspect]
     Active Substance: BUDESONIDE\FORMOTEROL FUMARATE DIHYDRATE
     Indication: ASTHMA
     Dosage: 2 PUFFS TWICE DAILY
     Route: 055

REACTIONS (2)
  - Palpitations [None]
  - Chest pain [None]

NARRATIVE: CASE EVENT DATE: 20150612
